FAERS Safety Report 7215231-5 (Version None)
Quarter: 2011Q1

REPORT INFORMATION
  Report Type: 
  Country: None (occurrence: None)
  Receive Date: 20110107
  Receipt Date: 20101227
  Transmission Date: 20110831
  Serious: Yes (Other)
  Sender: FDA-Public Use
  Company Number: PHHY2010JP88949

PATIENT
  Age: 57 Year
  Sex: Male

DRUGS (4)
  1. NEORAL [Suspect]
     Dosage: 50 MG
     Route: 048
     Dates: start: 20101218
  2. ARAVA [Suspect]
     Indication: RHEUMATOID ARTHRITIS
     Dosage: UNK
     Route: 048
  3. NEORAL [Suspect]
     Indication: RHEUMATOID ARTHRITIS
     Dosage: 100 MG
     Route: 048
     Dates: start: 20100320, end: 20101217
  4. RHEUMATREX [Suspect]
     Indication: RHEUMATOID ARTHRITIS
     Dosage: UNK
     Route: 048

REACTIONS (3)
  - PALPITATIONS [None]
  - LOSS OF CONSCIOUSNESS [None]
  - DYSPNOEA [None]
